FAERS Safety Report 6463272-8 (Version None)
Quarter: 2009Q4

REPORT INFORMATION
  Report Type: 
  Country: None (occurrence: None)
  Receive Date: 20091130
  Receipt Date: 20090604
  Transmission Date: 20100525
  Serious: Yes (Other)
  Sender: FDA-Public Use
  Company Number: US-AMGEN-QUU350214

PATIENT
  Sex: Female

DRUGS (1)
  1. ENBREL [Suspect]
     Indication: RHEUMATOID ARTHRITIS
     Route: 058

REACTIONS (8)
  - ADVERSE DRUG REACTION [None]
  - ARTHRALGIA [None]
  - BONE DENSITY DECREASED [None]
  - CUTANEOUS VASCULITIS [None]
  - FATIGUE [None]
  - JOINT SWELLING [None]
  - JOINT WARMTH [None]
  - PYREXIA [None]
